FAERS Safety Report 10935759 (Version 4)
Quarter: 2015Q2

REPORT INFORMATION
  Report Type: Report from Study
  Country: CA (occurrence: CA)
  Receive Date: 20150320
  Receipt Date: 20150420
  Transmission Date: 20150821
  Serious: Yes (Other)
  Sender: FDA-Public Use
  Company Number: CA-AMGEN-CANSL2015025342

PATIENT
  Age: 90 Year
  Sex: Female

DRUGS (7)
  1. XARELTO [Concomitant]
     Active Substance: RIVAROXABAN
     Indication: ATRIAL FIBRILLATION
     Dosage: UNK
  2. LUTEIN                             /01638501/ [Concomitant]
     Active Substance: LUTEIN
     Indication: EYE DISORDER
     Dosage: UNK
  3. OXAZEPAM. [Concomitant]
     Active Substance: OXAZEPAM
     Dosage: UNK
  4. CALCIUM W/VITAMIN D                /00944201/ [Concomitant]
     Dosage: UNK
  5. PROLIA [Suspect]
     Active Substance: DENOSUMAB
     Indication: OSTEOPOROSIS POSTMENOPAUSAL
     Dosage: 60 MG/ML, Q6MO
     Route: 058
     Dates: start: 20140914
  6. LORAZEPAM. [Concomitant]
     Active Substance: LORAZEPAM
     Dosage: UNK
  7. METOPROLOL [Concomitant]
     Active Substance: METOPROLOL
     Indication: ATRIAL FIBRILLATION
     Dosage: UNK

REACTIONS (7)
  - Tooth disorder [Not Recovered/Not Resolved]
  - Device failure [Unknown]
  - Loose tooth [Not Recovered/Not Resolved]
  - Back pain [Unknown]
  - Tooth infection [Unknown]
  - Breast cancer [Unknown]
  - Gingival disorder [Unknown]

NARRATIVE: CASE EVENT DATE: 201412
